FAERS Safety Report 8537914-7 (Version None)
Quarter: 2012Q3

REPORT INFORMATION
  Report Type: 
  Country: None (occurrence: None)
  Receive Date: 20120725
  Receipt Date: 20120718
  Transmission Date: 20120928
  Serious: Yes (Other)
  Sender: FDA-Public Use
  Company Number: JP-GLAXOSMITHKLINE-B0796949A

PATIENT
  Age: 38 Year
  Sex: Female
  Weight: 42 kg

DRUGS (14)
  1. ROHYPNOL [Concomitant]
     Route: 048
  2. EVAMYL [Concomitant]
     Route: 048
  3. AMOBAN [Concomitant]
     Route: 048
  4. LULLAN [Concomitant]
     Route: 048
  5. PROMAZINE HYDROCHLORIDE [Concomitant]
     Route: 048
  6. ROZEREM [Concomitant]
     Route: 048
  7. CEFAZOLIN SODIUM [Concomitant]
     Route: 048
  8. LENDORMIN [Concomitant]
     Route: 048
  9. DEPAS [Concomitant]
     Route: 048
  10. LAMICTAL [Suspect]
     Indication: BIPOLAR II DISORDER
     Dosage: 25MG PER DAY
     Route: 048
     Dates: start: 20111012, end: 20111017
  11. MAGLAX [Concomitant]
     Route: 048
  12. LAMICTAL [Suspect]
     Dosage: 50MG PER DAY
     Route: 048
     Dates: start: 20111018, end: 20111024
  13. PURSENNID [Concomitant]
     Route: 048
  14. VITAMIN B12 [Concomitant]
     Route: 048

REACTIONS (7)
  - BLOOD CREATINE PHOSPHOKINASE INCREASED [None]
  - FLUSHING [None]
  - RASH [None]
  - ERYTHEMA [None]
  - PYREXIA [None]
  - ASPARTATE AMINOTRANSFERASE INCREASED [None]
  - FACE OEDEMA [None]
